FAERS Safety Report 8577297-X (Version None)
Quarter: 2012Q3

REPORT INFORMATION
  Report Type: 
  Country: None (occurrence: None)
  Receive Date: 20120807
  Receipt Date: 20120801
  Transmission Date: 20120928
  Serious: No
  Sender: FDA-Public Use
  Company Number: US-COVIDIEN/TYCO HEALTHCARE/MALLINCKRODT-T201203017

PATIENT
  Age: 61 Year
  Sex: Male
  Weight: 92.517 kg

DRUGS (14)
  1. RAMIPRIL [Concomitant]
     Indication: HYPERTENSION
     Dosage: UNK
     Route: 048
  2. TRICOR [Concomitant]
     Indication: BLOOD CHOLESTEROL INCREASED
     Dosage: UNK
     Route: 048
  3. AMBIEN [Concomitant]
     Indication: INSOMNIA
     Dosage: UNK
     Route: 048
  4. ASPIRIN [Concomitant]
     Indication: CARDIOVASCULAR DISORDER
     Dosage: UNK
     Route: 048
  5. KLONOPIN [Concomitant]
     Indication: ANXIETY
     Dosage: UNK
     Route: 048
  6. PENNSAID [Suspect]
     Indication: BACK PAIN
     Dosage: FEW DROPS SPARINGLY
     Route: 061
     Dates: start: 20120507, end: 20120711
  7. ALLOPURINOL [Concomitant]
     Indication: GOUT
     Dosage: UNK
     Route: 048
  8. PERCOCET [Concomitant]
     Indication: BACK PAIN
     Dosage: UNK
     Route: 048
  9. PROVIGIL [Concomitant]
     Indication: SLEEP DISORDER
     Dosage: UNK
     Route: 048
  10. CYMBALTA [Concomitant]
     Indication: ANXIETY
     Dosage: UNK
     Route: 048
  11. OXYCONTIN [Concomitant]
     Indication: BACK PAIN
     Dosage: UNK
     Route: 048
  12. PLAVIX [Concomitant]
     Indication: ANGINA PECTORIS
     Dosage: UNK
     Route: 048
  13. COREG [Concomitant]
     Indication: HYPERTENSION
     Dosage: UNK
     Route: 048
  14. LIPITOR [Concomitant]
     Indication: BLOOD CHOLESTEROL INCREASED
     Dosage: UNK
     Route: 048

REACTIONS (3)
  - LOCALISED OEDEMA [None]
  - RASH PAPULAR [None]
  - NAUSEA [None]
